FAERS Safety Report 8712056 (Version 2)
Quarter: 2013Q4

REPORT INFORMATION
  Report Type: Spontaneous
  Country: JP (occurrence: JP)
  Receive Date: 20120807
  Receipt Date: 20131227
  Transmission Date: 20140711
  Serious: Yes (Hospitalization)
  Sender: FDA-Public Use
  Company Number: PHHY2008JP11862

PATIENT
  Age: 58 Year
  Sex: Male
  Weight: 63 kg

DRUGS (42)
  1. EVEROLIMUS [Suspect]
     Indication: HEART TRANSPLANT
     Dosage: 1.5 MG
     Route: 048
     Dates: start: 20060907, end: 20061031
  2. EVEROLIMUS [Suspect]
     Dosage: 1.25 MG
     Route: 048
     Dates: start: 20061101, end: 20070302
  3. EVEROLIMUS [Suspect]
     Dosage: 1 MG
     Route: 048
     Dates: start: 20070303, end: 20070711
  4. EVEROLIMUS [Suspect]
     Dosage: 6.75 MG
     Route: 048
     Dates: start: 20070712, end: 20080905
  5. EVEROLIMUS [Suspect]
     Dosage: 7 MG
     Route: 048
     Dates: start: 20080927, end: 20081105
  6. EVEROLIMUS [Suspect]
     Dosage: 4.5 MG
     Route: 048
     Dates: start: 20081109, end: 20090615
  7. EVEROLIMUS [Suspect]
     Dosage: 4 MG
     Route: 048
     Dates: start: 20090616, end: 20090618
  8. EVEROLIMUS [Suspect]
     Dosage: 3.5 MG
     Route: 048
     Dates: start: 20090619, end: 20090828
  9. EVEROLIMUS [Suspect]
     Dosage: 3.5 MG
     Route: 048
     Dates: start: 20090829, end: 20090928
  10. EVEROLIMUS [Suspect]
     Dosage: 3.25 MG
     Route: 048
     Dates: start: 20090929, end: 20091003
  11. EVEROLIMUS [Suspect]
     Dosage: 2 MG
     Route: 048
     Dates: start: 20091003, end: 20100208
  12. EVEROLIMUS [Suspect]
     Dosage: 2.25 MG
     Route: 048
     Dates: start: 20100209, end: 20100319
  13. EVEROLIMUS [Suspect]
     Dosage: 2 MG
     Route: 048
     Dates: start: 20100320, end: 20100415
  14. EVEROLIMUS [Suspect]
     Dosage: 2.5 MG
     Route: 048
     Dates: start: 20100416, end: 20100427
  15. EVEROLIMUS [Suspect]
     Dosage: 2.75 MG
     Route: 048
     Dates: start: 20100428, end: 20100621
  16. EVEROLIMUS [Suspect]
     Dosage: 2.5 MG
     Route: 048
     Dates: start: 20100622, end: 20100719
  17. EVEROLIMUS [Suspect]
     Dosage: 3 MG
     Route: 048
     Dates: start: 20100720, end: 20100905
  18. EVEROLIMUS [Suspect]
     Dosage: 3.25 MG
     Route: 048
     Dates: start: 20100906, end: 20100922
  19. EVEROLIMUS [Suspect]
     Dosage: 3 MG
     Route: 048
     Dates: start: 20100923, end: 20101213
  20. EVEROLIMUS [Suspect]
     Dosage: 3 MG
     Route: 048
     Dates: start: 20101214, end: 20110126
  21. EVEROLIMUS [Suspect]
     Dosage: 2.5 MG
     Route: 048
     Dates: start: 20110127, end: 20110418
  22. EVEROLIMUS [Suspect]
     Dosage: 2.25 MG
     Route: 048
     Dates: start: 20110419
  23. EVEROLIMUS [Suspect]
     Dosage: 1.25 MG,
     Route: 048
     Dates: start: 20111201, end: 20120823
  24. EVEROLIMUS [Suspect]
     Dosage: 1.5 MG,
     Route: 048
     Dates: start: 20120824
  25. TACROLIMUS [Suspect]
     Indication: HEART TRANSPLANT
     Dosage: 3.5 MG
     Route: 048
     Dates: start: 20061101, end: 20061211
  26. TACROLIMUS [Suspect]
     Dosage: 4 MG
     Route: 048
     Dates: start: 20061212, end: 20070112
  27. TACROLIMUS [Suspect]
     Dosage: 4.5 MG
     Route: 048
     Dates: start: 20070113, end: 20070607
  28. TACROLIMUS [Suspect]
     Dosage: 5 MG
     Route: 048
     Dates: start: 20070608, end: 20070810
  29. TACROLIMUS [Suspect]
     Dosage: 4.5 MG
     Route: 048
     Dates: start: 20070811, end: 20070929
  30. TACROLIMUS [Suspect]
     Dosage: 4.25 MG
     Route: 048
     Dates: start: 20070930
  31. TACROLIMUS [Suspect]
     Dosage: 3 MG
     Route: 048
     Dates: start: 20080606, end: 20080619
  32. TACROLIMUS [Suspect]
     Dosage: 2.75 MG
     Route: 048
     Dates: start: 20080620, end: 20080627
  33. TACROLIMUS [Suspect]
     Dosage: 2.5 MG
     Route: 048
     Dates: start: 20080628, end: 20080708
  34. TACROLIMUS [Suspect]
     Dosage: 2.25 MG
     Route: 048
     Dates: start: 20080709, end: 20080814
  35. MYCOPHENOLATE MOFETIL [Concomitant]
     Indication: HEART TRANSPLANT
     Route: 048
  36. PREDNISOLONE [Concomitant]
     Indication: HEART TRANSPLANT
     Dosage: 1.25 MG
     Route: 048
     Dates: start: 20061101, end: 20070502
  37. CAPTOPRIL [Concomitant]
     Dosage: 37.5 MG, UNK
     Route: 048
     Dates: start: 20061101
  38. HERBESSOR R [Concomitant]
     Dosage: 400 MG, UNK
     Route: 048
     Dates: start: 20061101
  39. PRAVASTATIN SODIUM [Concomitant]
     Dosage: 20 MG, UNK
     Route: 048
     Dates: start: 20061101
  40. PRAVASTATIN SODIUM [Concomitant]
     Dosage: 10 MG
     Route: 048
  41. PREDONINE [Concomitant]
     Indication: HEART TRANSPLANT
     Dosage: 5 MG
     Route: 048
     Dates: start: 20080606
  42. LEVEMIR [Concomitant]
     Dosage: 2 DF, UNK
     Route: 058
     Dates: start: 20070422

REACTIONS (10)
  - Troponin I increased [Recovering/Resolving]
  - Colon cancer [Recovered/Resolved]
  - Abdominal pain [Unknown]
  - Peritonitis [Recovered/Resolved]
  - Metastases to liver [Recovered/Resolved]
  - Metastases to lymph nodes [Recovered/Resolved]
  - Large intestine perforation [Unknown]
  - Lymphoedema [Recovering/Resolving]
  - Oedema peripheral [Recovering/Resolving]
  - Glucose tolerance impaired [Not Recovered/Not Resolved]
